FAERS Safety Report 9188921 (Version 3)
Quarter: 2013Q3

REPORT INFORMATION
  Report Type: Report from Study
  Country: US (occurrence: US)
  Receive Date: 20130326
  Receipt Date: 20130905
  Transmission Date: 20140515
  Serious: Yes (Other)
  Sender: FDA-Public Use
  Company Number: US-BAXTER-2013BAX010582

PATIENT
  Age: 68 Year
  Sex: Female
  Weight: 72.73 kg

DRUGS (7)
  1. GAMMAGARD LIQUID [Suspect]
     Indication: BLOOD IMMUNOGLOBULIN M DECREASED
     Route: 058
     Dates: start: 201210
  2. GAMMAGARD LIQUID [Suspect]
     Indication: BLOOD IMMUNOGLOBULIN G DECREASED
  3. GAMMAGARD LIQUID [Suspect]
     Indication: IMMUNODEFICIENCY COMMON VARIABLE
     Route: 058
     Dates: start: 20130627
  4. GAMMAGARD LIQUID [Suspect]
     Route: 058
     Dates: start: 20130627
  5. ESTRACE CREAM [Concomitant]
     Indication: PRODUCT USED FOR UNKNOWN INDICATION
     Route: 065
  6. COZAAR [Concomitant]
     Indication: HYPERTENSION
     Route: 065
  7. LIPITOR [Concomitant]
     Indication: PRODUCT USED FOR UNKNOWN INDICATION
     Route: 065

REACTIONS (12)
  - Blood glucose decreased [Recovered/Resolved]
  - Blood pressure increased [Recovered/Resolved]
  - Infusion site haematoma [Recovered/Resolved]
  - Infusion site haemorrhage [Recovered/Resolved]
  - Infusion site erythema [Recovered/Resolved]
  - Infusion site pain [Recovered/Resolved]
  - Nervousness [Recovered/Resolved]
  - Blood pressure increased [Recovered/Resolved]
  - Rash [Recovered/Resolved]
  - Dysphagia [Unknown]
  - Thyroid disorder [Unknown]
  - Dizziness [Recovering/Resolving]
